FAERS Safety Report 17971266 (Version 1)
Quarter: 2020Q3

REPORT INFORMATION
  Report Type: Spontaneous
  Country: TR (occurrence: TR)
  Receive Date: 20200701
  Receipt Date: 20200701
  Transmission Date: 20201103
  Serious: Yes (Other)
  Sender: FDA-Public Use
  Company Number: NVSC2020TR182135

PATIENT
  Age: 2 Year

DRUGS (1)
  1. ILARIS [Suspect]
     Active Substance: CANAKINUMAB
     Indication: STILL^S DISEASE
     Dosage: UNK UNK, Q4W
     Route: 065

REACTIONS (2)
  - Haemophagocytic lymphohistiocytosis [Unknown]
  - Drug ineffective [Unknown]
